FAERS Safety Report 6741465-X (Version None)
Quarter: 2010Q2

REPORT INFORMATION
  Report Type: 
  Country: None (occurrence: None)
  Receive Date: 20100526
  Receipt Date: 20100519
  Transmission Date: 20101027
  Serious: Yes (Other)
  Sender: FDA-Public Use
  Company Number: US-JNJFOC-20060906244

PATIENT
  Sex: Female

DRUGS (4)
  1. RISPERDAL [Suspect]
     Indication: ANXIETY
  2. RISPERDAL [Suspect]
     Indication: DEPRESSION
  3. ZOLOFT [Concomitant]
     Indication: DRUG USE FOR UNKNOWN INDICATION
  4. ATIVAN [Concomitant]
     Indication: DRUG USE FOR UNKNOWN INDICATION

REACTIONS (6)
  - DIABETES MELLITUS [None]
  - GALACTORRHOEA [None]
  - PANCREATITIS [None]
  - SOMNOLENCE [None]
  - TARDIVE DYSKINESIA [None]
  - WRONG TECHNIQUE IN DRUG USAGE PROCESS [None]
